FAERS Safety Report 24591429 (Version 1)
Quarter: 2024Q4

REPORT INFORMATION
  Report Type: Spontaneous
  Country: CN (occurrence: CN)
  Receive Date: 20241108
  Receipt Date: 20241108
  Transmission Date: 20250115
  Serious: Yes (Life-Threatening, Other)
  Sender: Haleon PLC
  Company Number: CN-HALEON-2207159

PATIENT
  Age: 75 Year
  Sex: Male
  Weight: 65 kg

DRUGS (2)
  1. IBUPROFEN [Suspect]
     Active Substance: IBUPROFEN
     Indication: Peripheral swelling
     Route: 048
     Dates: start: 20240911, end: 20240911
  2. IBUPROFEN [Suspect]
     Active Substance: IBUPROFEN
     Indication: Pain in extremity

REACTIONS (5)
  - Anaphylactic shock [Recovering/Resolving]
  - Blood pressure abnormal [Recovered/Resolved]
  - Rash [Recovering/Resolving]
  - Syncope [Recovering/Resolving]
  - Pruritus [Recovering/Resolving]

NARRATIVE: CASE EVENT DATE: 20240911
